FAERS Safety Report 17989723 (Version 1)
Quarter: 2020Q3

REPORT INFORMATION
  Report Type: Spontaneous
  Country: US (occurrence: US)
  Receive Date: 20200707
  Receipt Date: 20200707
  Transmission Date: 20201103
  Serious: Yes (Other)
  Sender: FDA-Public Use
  Company Number: US-ALLERGAN-2025351US

PATIENT
  Sex: Male

DRUGS (2)
  1. REFRESH CELLUVISC [Suspect]
     Active Substance: CARBOXYMETHYLCELLULOSE SODIUM
     Indication: DRY EYE
  2. REFRESH CELLUVISC [Suspect]
     Active Substance: CARBOXYMETHYLCELLULOSE SODIUM
     Indication: HYPERSENSITIVITY

REACTIONS (4)
  - Expired product administered [Unknown]
  - Cataract [Unknown]
  - Vision blurred [Unknown]
  - Product use in unapproved indication [Unknown]
